FAERS Safety Report 13775508 (Version 5)
Quarter: 2018Q2

REPORT INFORMATION
  Report Type: Report from Study
  Country: US (occurrence: US)
  Receive Date: 20170721
  Receipt Date: 20180521
  Transmission Date: 20180711
  Serious: Yes (Other)
  Sender: FDA-Public Use
  Company Number: US-AMGEN-USASL2017107770

PATIENT
  Age: 79 Year
  Sex: Female
  Weight: 52.61 kg

DRUGS (3)
  1. REPATHA [Suspect]
     Active Substance: EVOLOCUMAB
     Dosage: 140 MG, Q2WK
     Route: 065
  2. REPATHA [Suspect]
     Active Substance: EVOLOCUMAB
     Indication: BLOOD CHOLESTEROL INCREASED
     Dosage: 140 MG, Q6WK
     Route: 065
     Dates: start: 201611
  3. REPATHA [Suspect]
     Active Substance: EVOLOCUMAB
     Indication: HYPERCHOLESTEROLAEMIA
     Dosage: 140 MG, EVERY OTHER MONTH
     Route: 065

REACTIONS (11)
  - Upper limb fracture [Not Recovered/Not Resolved]
  - Pain [Unknown]
  - Malaise [Unknown]
  - Platelet count abnormal [Unknown]
  - Influenza [Unknown]
  - Drug hypersensitivity [Unknown]
  - Myalgia [Unknown]
  - Feeling abnormal [Unknown]
  - Fall [Unknown]
  - Back pain [Unknown]
  - Pain in extremity [Unknown]

NARRATIVE: CASE EVENT DATE: 201709
